FAERS Safety Report 6956175-3 (Version None)
Quarter: 2010Q3

REPORT INFORMATION
  Report Type: 
  Country: None (occurrence: None)
  Receive Date: 20100830
  Receipt Date: 20100817
  Transmission Date: 20110219
  Serious: Yes (Other)
  Sender: FDA-Public Use
  Company Number: PHFR2010IE02029

PATIENT
  Sex: Male

DRUGS (2)
  1. CLOZARIL [Suspect]
     Indication: SCHIZOPHRENIA
     Dosage: UNK
     Route: 048
     Dates: start: 20090408
  2. KEPPRA [Suspect]
     Indication: DYSTONIA
     Dosage: UNK
     Dates: start: 20090101

REACTIONS (2)
  - DYSTONIA [None]
  - PLATELET COUNT DECREASED [None]
